FAERS Safety Report 11151098 (Version 2)
Quarter: 2015Q2

REPORT INFORMATION
  Report Type: Spontaneous
  Country: VE (occurrence: VE)
  Receive Date: 20150601
  Receipt Date: 20150630
  Transmission Date: 20150821
  Serious: Yes (Death, Hospitalization)
  Sender: FDA-Public Use
  Company Number: VE-NOVOPROD-450979

PATIENT
  Age: 1 Year
  Sex: Male

DRUGS (2)
  1. FEIBA [Suspect]
     Active Substance: ANTI-INHIBITOR COAGULANT COMPLEX
     Indication: HAEMOPHILIA
     Dosage: 50 UNITS PER KG EVERY 12 HOURS
     Route: 065
  2. NOVOSEVEN [Suspect]
     Active Substance: COAGULATION FACTOR VIIA RECOMBINANT HUMAN
     Indication: HAEMOPHILIA
     Dosage: 190 ?G, QD
     Route: 065
     Dates: start: 20150320

REACTIONS (3)
  - Tracheal haemorrhage [Fatal]
  - Septic shock [Unknown]
  - Expired product administered [Unknown]

NARRATIVE: CASE EVENT DATE: 20150411
